FAERS Safety Report 6663027-5 (Version None)
Quarter: 2010Q2

REPORT INFORMATION
  Report Type: 
  Country: None (occurrence: None)
  Receive Date: 20100401
  Receipt Date: 20100318
  Transmission Date: 20101027
  Serious: Yes (Hospitalization)
  Sender: FDA-Public Use
  Company Number: US-ELI_LILLY_AND_COMPANY-US201003007167

PATIENT
  Age: 78 Year
  Sex: Female

DRUGS (1)
  1. FORTEO [Suspect]

REACTIONS (2)
  - FALL [None]
  - SURGERY [None]
